FAERS Safety Report 9165022 (Version 1)
Quarter: 2013Q1

REPORT INFORMATION
  Report Type: Spontaneous
  Country: US (occurrence: US)
  Receive Date: 20130315
  Receipt Date: 20130315
  Transmission Date: 20140127
  Serious: Yes (Hospitalization)
  Sender: FDA-Public Use
  Company Number: US-BAYER-2013-028347

PATIENT
  Age: 43 Year
  Sex: Female

DRUGS (5)
  1. YAZ [Suspect]
  2. SYNTHROID [Concomitant]
  3. ADVIL [Concomitant]
  4. TYLENOL [Concomitant]
  5. PRENATAL VITAMINS [Concomitant]

REACTIONS (10)
  - Deep vein thrombosis [Recovering/Resolving]
  - Varicose vein [None]
  - Pain in extremity [Recovering/Resolving]
  - Pain in extremity [Recovering/Resolving]
  - Gait disturbance [Recovering/Resolving]
  - Muscle spasms [Recovering/Resolving]
  - Bone contusion [Recovering/Resolving]
  - Post-traumatic stress disorder [None]
  - Anxiety [None]
  - Fear of disease [None]
